FAERS Safety Report 22750285 (Version 2)
Quarter: 2025Q4

REPORT INFORMATION
  Report Type: Spontaneous
  Country: EU (occurrence: EU)
  Receive Date: 20230726
  Receipt Date: 20251001
  Transmission Date: 20260117
  Serious: Yes (Hospitalization, Other)
  Sender: AUROBINDO
  Company Number: EU-ROCHE-3255276

PATIENT
  Age: 49 Year
  Sex: Male

DRUGS (4)
  1. MYCOPHENOLIC ACID [Interacting]
     Active Substance: MYCOPHENOLIC ACID
     Indication: Prophylaxis against transplant rejection
     Dosage: 750 MILLIGRAM, TWO TIMES A DAY
     Route: 065
  2. VALACYCLOVIR HYDROCHLORIDE [Interacting]
     Active Substance: VALACYCLOVIR HYDROCHLORIDE
     Indication: Herpes zoster
     Dosage: 500 MILLIGRAM (0.33 DAY)(ON DAY 5/6)
     Route: 065
  3. VALACYCLOVIR HYDROCHLORIDE [Interacting]
     Active Substance: VALACYCLOVIR HYDROCHLORIDE
     Dosage: 1000 MILLIGRAM (0.5 DAY)(TWICE A DAY ON DAY 0, 1000 MG THRICE A DAY (TID) ON DAY 1 AND 4)
     Route: 048
  4. MEROPENEM [Concomitant]
     Active Substance: MEROPENEM
     Indication: Prostatitis
     Dosage: UNK
     Route: 065

REACTIONS (4)
  - Herpes zoster [Recovered/Resolved]
  - Drug interaction [Recovered/Resolved]
  - Antiviral drug level above therapeutic [Recovered/Resolved]
  - Drug level increased [Unknown]

NARRATIVE: CASE EVENT DATE: 20210101
